FAERS Safety Report 5095189-8 (Version None)
Quarter: 2006Q3

REPORT INFORMATION
  Report Type: 
  Country: None (occurrence: None)
  Receive Date: 20060901
  Receipt Date: 20060831
  Transmission Date: 20061208
  Serious: Yes (Life-Threatening, Hospitalization, Other)
  Sender: FDA-Public Use
  Company Number: US-GLAXOSMITHKLINE-A0618775A

PATIENT
  Age: 36 Year
  Sex: Female

DRUGS (10)
  1. ARIXTRA [Suspect]
     Dosage: 10MG PER DAY
     Route: 058
  2. TYLENOL [Concomitant]
  3. AMPHOTERICIN B [Concomitant]
  4. CALCITONIN-SALMON [Concomitant]
  5. MORPHINE [Concomitant]
  6. PRIMAXIN [Concomitant]
  7. INSULIN [Concomitant]
  8. SOLU-MEDROL [Concomitant]
  9. METOCLOPRAMIDE [Concomitant]
  10. PROTONIX [Concomitant]

REACTIONS (2)
  - HAEMORRHAGE [None]
  - SEPSIS [None]
